FAERS Safety Report 6328836-0 (Version None)
Quarter: 2009Q3

REPORT INFORMATION
  Report Type: 
  Country: None (occurrence: None)
  Receive Date: 20090825
  Receipt Date: 20090825
  Transmission Date: 20100115
  Serious: No
  Sender: FDA-Public Use
  Company Number: None

PATIENT
  Sex: Female
  Weight: 56.6996 kg

DRUGS (1)
  1. ZICAM NASAL SPRAY [Suspect]
     Dosage: AS PRESCRIBED ABOUT ONCE IN 3 MO NASAL
     Route: 045

REACTIONS (1)
  - ANOSMIA [None]
